FAERS Safety Report 5926634-0 (Version None)
Quarter: 2008Q4

REPORT INFORMATION
  Report Type: 
  Country: None (occurrence: None)
  Receive Date: 20081022
  Receipt Date: 20081020
  Transmission Date: 20090506
  Serious: Yes (Hospitalization)
  Sender: FDA-Public Use
  Company Number: B0542709A

PATIENT
  Age: 84 Year
  Sex: Male

DRUGS (5)
  1. COROPRES [Suspect]
     Route: 048
     Dates: start: 20020101, end: 20080119
  2. PANTOPRAZOLE SODIUM [Concomitant]
  3. MASDIL [Concomitant]
     Dates: start: 20020101, end: 20080119
  4. NITRO-DUR [Concomitant]
     Dates: start: 20060101
  5. SEGURIL [Concomitant]
     Dates: start: 20020101, end: 20080119

REACTIONS (5)
  - CEREBROVASCULAR ACCIDENT [None]
  - HYPOKALAEMIA [None]
  - RENAL FAILURE [None]
  - RETCHING [None]
  - SPEECH DISORDER [None]
